FAERS Safety Report 19172941 (Version 1)
Quarter: 2021Q2

REPORT INFORMATION
  Report Type: Spontaneous
  Country: US (occurrence: US)
  Receive Date: 20210422
  Receipt Date: 20210422
  Transmission Date: 20210717
  Serious: Yes (Disabling, Other)
  Sender: FDA-Public Use
  Company Number: None

PATIENT
  Age: 60 Year
  Sex: Male
  Weight: 78.75 kg

DRUGS (2)
  1. ESCITALOPRAM [Concomitant]
     Active Substance: ESCITALOPRAM OXALATE
  2. CIPROFLOXACIN. [Suspect]
     Active Substance: CIPROFLOXACIN
     Indication: PROSTATE INFECTION
     Route: 048
     Dates: start: 20120118, end: 20120212

REACTIONS (5)
  - Myalgia [None]
  - Tendon rupture [None]
  - Tinnitus [None]
  - Tendon pain [None]
  - Neuropathy peripheral [None]

NARRATIVE: CASE EVENT DATE: 20120211
